FAERS Safety Report 8457832-2 (Version None)
Quarter: 2012Q2

REPORT INFORMATION
  Report Type: 
  Country: None (occurrence: None)
  Receive Date: 20120622
  Receipt Date: 20120611
  Transmission Date: 20120825
  Serious: Yes (Hospitalization)
  Sender: FDA-Public Use
  Company Number: IN-ACCORD-013744

PATIENT
  Age: 12 Year
  Sex: Female

DRUGS (3)
  1. PREDNISOLONE [Concomitant]
     Dosage: ALTERNATE DAY
  2. TACROLIMUS [Suspect]
     Indication: NEPHROTIC SYNDROME
     Route: 048
  3. ENALAPRIL MALEATE [Concomitant]

REACTIONS (2)
  - DIABETIC KETOACIDOSIS [None]
  - OFF LABEL USE [None]
